FAERS Safety Report 7516898-4 (Version None)
Quarter: 2011Q2

REPORT INFORMATION
  Report Type: 
  Country: None (occurrence: None)
  Receive Date: 20110429
  Receipt Date: 20100611
  Transmission Date: 20111010
  Serious: Yes (Other)
  Sender: FDA-Public Use
  Company Number: US-JNJFOC-20100504100

PATIENT
  Age: 18 Month
  Sex: Male
  Weight: 12.7007 kg

DRUGS (8)
  1. ANTIBIOTICS (ANTIBIOTICS) [Concomitant]
  2. CONCENTRATED MOTRIN INFANTS DROPS [Suspect]
     Indication: PYREXIA
     Dosage: 1-2 DOSES
     Dates: start: 20091101
  3. CONCENTRATED MOTRIN INFANTS DROPS [Suspect]
     Indication: GENITAL INFECTION
     Dosage: 1-2 DOSES
     Dates: start: 20091101
  4. CONCENTRATED TYLENOL INFANT DROPS [Suspect]
     Indication: DERMATITIS DIAPER
     Dosage: 1-2 DOSES PER DAY
     Dates: start: 20091101
  5. CONCENTRATED TYLENOL INFANT DROPS [Suspect]
     Indication: GENITAL INFECTION
     Dosage: 1-2 DOSES PER DAY
     Dates: start: 20091101
  6. CONCENTRATED TYLENOL INFANT DROPS [Suspect]
     Indication: PYREXIA
     Dosage: 1-2 DOSES PER DAY
     Dates: start: 20091101
  7. CONCENTRATED TYLENOL INFANT DROPS [Suspect]
     Indication: PYREXIA
     Dosage: ORAL
     Route: 048
  8. CONCENTRATED TYLENOL INFANT DROPS [Suspect]
     Indication: INFECTION
     Dosage: ORAL
     Route: 048

REACTIONS (8)
  - PRODUCT QUALITY ISSUE [None]
  - CONSTIPATION [None]
  - DRUG INEFFECTIVE [None]
  - INFECTION [None]
  - DERMATITIS DIAPER [None]
  - SKIN SWELLING [None]
  - DIARRHOEA [None]
  - PYREXIA [None]
